FAERS Safety Report 25884029 (Version 1)
Quarter: 2025Q4

REPORT INFORMATION
  Report Type: Spontaneous
  Country: US (occurrence: None)
  Receive Date: 20251003
  Receipt Date: 20251003
  Transmission Date: 20260118
  Serious: Yes (Other)
  Sender: FDA-CTU
  Company Number: None

PATIENT
  Age: 60 Year
  Sex: Female

DRUGS (9)
  1. DEBROX [Suspect]
     Active Substance: CARBAMIDE PEROXIDE
     Indication: Cerumen removal
     Dosage: OTHER QUANTITY : 5 DROP(S);?FREQUENCY : TWICE A DAY;?
     Route: 001
     Dates: start: 20250726, end: 20250726
  2. METFORMIN [Concomitant]
     Active Substance: METFORMIN HYDROCHLORIDE
  3. METHIMAZOLE [Concomitant]
     Active Substance: METHIMAZOLE
  4. ATORVASTATIN [Concomitant]
     Active Substance: ATORVASTATIN
  5. LOSARTAN [Concomitant]
     Active Substance: LOSARTAN
  6. CINNAMON [Concomitant]
     Active Substance: CINNAMON
  7. BERBERINE [Concomitant]
     Active Substance: BERBERINE
  8. Vitamin D2 with Vitamin K [Concomitant]
  9. VITAMINS [Concomitant]
     Active Substance: VITAMINS

REACTIONS (3)
  - Ear pain [None]
  - Tympanic membrane perforation [None]
  - Deafness [None]

NARRATIVE: CASE EVENT DATE: 20250726
